FAERS Safety Report 10222144 (Version 2)
Quarter: 2014Q2

REPORT INFORMATION
  Report Type: Spontaneous
  Country: MX (occurrence: MX)
  Receive Date: 20140606
  Receipt Date: 20140606
  Transmission Date: 20141212
  Serious: No
  Sender: FDA-Public Use
  Company Number: MX-BIOMARINP-001161

PATIENT
  Age: 5 Year
  Sex: Male
  Weight: 15 kg

DRUGS (3)
  1. NAGLAZYME [Suspect]
     Indication: MUCOPOLYSACCHARIDOSIS VI
     Dosage: 20 MG, QW
     Route: 041
     Dates: start: 20100330
  2. PARACETAMOL [Concomitant]
     Indication: PREMEDICATION
     Dosage: 10 MG/KG, UNK
  3. CETIRIZINE [Concomitant]
     Indication: PREMEDICATION
     Dosage: 0.25 MG/KG, UNK

REACTIONS (1)
  - Varicella [Recovered/Resolved]
